FAERS Safety Report 5028717-9 (Version None)
Quarter: 2006Q2

REPORT INFORMATION
  Report Type: 
  Country: None (occurrence: None)
  Receive Date: 20060501
  Receipt Date: 20051219
  Transmission Date: 20061013
  Serious: No
  Sender: FDA-Public Use
  Company Number: 2005PV006062

PATIENT
  Age: 68 Year
  Sex: Male
  Weight: 119.296 kg

DRUGS (10)
  1. SYMLIN [Suspect]
     Indication: DIABETES MELLITUS INSULIN-DEPENDENT
     Dosage: SEE IMAGE
     Route: 058
     Dates: start: 20051207, end: 20051210
  2. SYMLIN [Suspect]
     Indication: DIABETES MELLITUS INSULIN-DEPENDENT
     Dosage: SEE IMAGE
     Route: 058
     Dates: start: 20051210, end: 20051213
  3. SYMLIN [Suspect]
     Indication: DIABETES MELLITUS INSULIN-DEPENDENT
     Dosage: SEE IMAGE
     Route: 058
     Dates: start: 20051213, end: 20051215
  4. NOVOLOG [Concomitant]
  5. ALLEGRA [Concomitant]
  6. RANITIDINE [Concomitant]
  7. AMARYL [Concomitant]
  8. INDERAL [Concomitant]
  9. DETROL LA [Concomitant]
  10. AVODART /USA/ [Concomitant]

REACTIONS (4)
  - DRUG INEFFECTIVE [None]
  - FEAR [None]
  - HALLUCINATION [None]
  - NAUSEA [None]
